FAERS Safety Report 25868944 (Version 1)
Quarter: 2025Q3

REPORT INFORMATION
  Report Type: Spontaneous
  Country: US (occurrence: None)
  Receive Date: 20250930
  Receipt Date: 20250930
  Transmission Date: 20251020
  Serious: Yes (Hospitalization)
  Sender: FDA-CTU
  Company Number: None

PATIENT
  Age: 70 Year
  Sex: Female

DRUGS (1)
  1. KEYTRUDA [Suspect]
     Active Substance: PEMBROLIZUMAB

REACTIONS (7)
  - Diarrhoea [None]
  - Constipation [None]
  - Haematoma [None]
  - Contusion [None]
  - Visual impairment [None]
  - Road traffic accident [None]
  - Therapy interrupted [None]
